FAERS Safety Report 21811444 (Version 1)
Quarter: 2023Q1

REPORT INFORMATION
  Report Type: Spontaneous
  Country: ES (occurrence: ES)
  Receive Date: 20230103
  Receipt Date: 20230103
  Transmission Date: 20230418
  Serious: Yes (Other)
  Sender: FDA-Public Use
  Company Number: None

PATIENT
  Age: 51 Year
  Sex: Male
  Weight: 65.5 kg

DRUGS (2)
  1. FLUCONAZOLE [Suspect]
     Active Substance: FLUCONAZOLE
     Indication: Pneumocystis jirovecii pneumonia
     Dosage: 200MG/12H
     Route: 048
     Dates: start: 20200131, end: 20200214
  2. PENTAMIDINE ISETHIONATE [Suspect]
     Active Substance: PENTAMIDINE ISETHIONATE
     Indication: Pneumocystis jirovecii pneumonia
     Dosage: 300MG/24H
     Route: 042
     Dates: start: 20200128, end: 20200209

REACTIONS (1)
  - Pancreatitis [Unknown]

NARRATIVE: CASE EVENT DATE: 20200203
